FAERS Safety Report 6264993-2 (Version None)
Quarter: 2009Q3

REPORT INFORMATION
  Report Type: 
  Country: None (occurrence: None)
  Receive Date: 20090709
  Receipt Date: 20090709
  Transmission Date: 20100115
  Serious: Yes (Other)
  Sender: FDA-Public Use
  Company Number: None

PATIENT
  Sex: Female
  Weight: 86.1834 kg

DRUGS (1)
  1. ACTONEL [Suspect]
     Indication: OSTEOPOROSIS
     Dosage: ONE TABLET ONCE A WEEK MOUTH
     Route: 048
     Dates: start: 20081116, end: 20081123

REACTIONS (4)
  - ABDOMINAL PAIN UPPER [None]
  - ARTHRITIS [None]
  - BACK PAIN [None]
  - OESOPHAGEAL PAIN [None]
